FAERS Safety Report 5855793-3 (Version None)
Quarter: 2008Q3

REPORT INFORMATION
  Report Type: 
  Country: None (occurrence: None)
  Receive Date: 20080825
  Receipt Date: 20080819
  Transmission Date: 20090109
  Serious: Yes (Life-Threatening, Hospitalization)
  Sender: FDA-Public Use
  Company Number: BE-BRISTOL-MYERS SQUIBB COMPANY-14312458

PATIENT
  Age: 56 Year
  Sex: Female

DRUGS (5)
  1. METFORMIN HCL [Suspect]
     Indication: TYPE 2 DIABETES MELLITUS
  2. PIROXICAM [Interacting]
     Indication: ANALGESIA
  3. FUROSEMIDE [Interacting]
     Indication: HYPERTENSION
  4. HYDROCHLOROTHIAZIDE [Interacting]
     Indication: HYPERTENSION
  5. VALSARTAN [Interacting]
     Indication: HYPERTENSION

REACTIONS (2)
  - DRUG INTERACTION [None]
  - LACTIC ACIDOSIS [None]
